FAERS Safety Report 16462893 (Version 2)
Quarter: 2019Q3

REPORT INFORMATION
  Report Type: Spontaneous
  Country: ES (occurrence: ES)
  Receive Date: 20190621
  Receipt Date: 20190712
  Transmission Date: 20191004
  Serious: Yes (Hospitalization, Other)
  Sender: FDA-Public Use
  Company Number: ES-MACLEODS PHARMACEUTICALS US LTD-MAC2019021769

PATIENT

DRUGS (2)
  1. LORMETAZEPAM [Suspect]
     Active Substance: LORMETAZEPAM
     Indication: PRODUCT USED FOR UNKNOWN INDICATION
     Dosage: 0.5 DOSAGE FORM, HALF A TABLET OF LORMETAZEPAM (1 MG)
     Route: 048
  2. QUETIAPINE 50MG TABLET [Suspect]
     Active Substance: QUETIAPINE
     Indication: PRODUCT USED FOR UNKNOWN INDICATION
     Dosage: 2 DOSAGE FORM, QD, TABLET, 50 MG
     Route: 048

REACTIONS (9)
  - Accidental overdose [Recovered/Resolved]
  - Miosis [Recovered/Resolved]
  - Accidental exposure to product by child [Recovered/Resolved]
  - Altered state of consciousness [Recovered/Resolved]
  - Thrombocytopenia [Recovered/Resolved]
  - Somnolence [Recovered/Resolved]
  - Urinary retention [Recovered/Resolved]
  - Accidental poisoning [Recovered/Resolved]
  - Neutropenia [Recovered/Resolved]
